FAERS Safety Report 8185446-0 (Version None)
Quarter: 2012Q1

REPORT INFORMATION
  Report Type: 
  Country: None (occurrence: None)
  Receive Date: 20120305
  Receipt Date: 20120220
  Transmission Date: 20120608
  Serious: Yes (Hospitalization, Other)
  Sender: FDA-Public Use
  Company Number: US-PFIZER INC-2012056508

PATIENT
  Age: 27 Year
  Sex: Male

DRUGS (11)
  1. OLANZAPINE [Suspect]
     Indication: SCHIZOPHRENIA
     Dosage: UNK
  2. HALOPERIDOL [Suspect]
     Indication: SCHIZOPHRENIA
     Dosage: UNK
  3. ARIPIPRAZOLE [Suspect]
     Dosage: 2.5 MG/DAY
  4. OLANZAPINE [Suspect]
     Dosage: 20 MG/DAY
  5. ARIPIPRAZOLE [Suspect]
     Dosage: 20 MG/DAY
  6. CLOZAPINE [Concomitant]
     Indication: SCHIZOPHRENIA
     Dosage: 100MG/ DAY
  7. HALOPERIDOL [Suspect]
     Dosage: 15MG/ DAY
  8. CLOZAPINE [Concomitant]
     Dosage: 400MG/ DAY
  9. AIPIPRAZOLE [Suspect]
     Indication: SCHIZOPHRENIA
     Dosage: UNK
  10. OLANZAPINE [Suspect]
     Dosage: 10 MG/DAY
  11. CLOZAPINE [Concomitant]
     Dosage: 300MG/ DAY

REACTIONS (5)
  - SEDATION [None]
  - EOSINOPHILIA [None]
  - LIPASE INCREASED [None]
  - SCHIZOPHRENIA [None]
  - ENURESIS [None]
